FAERS Safety Report 7719398-1 (Version None)
Quarter: 2011Q3

REPORT INFORMATION
  Report Type: 
  Country: None (occurrence: None)
  Receive Date: 20110830
  Receipt Date: 20110825
  Transmission Date: 20111222
  Serious: Yes (Death, Life-Threatening, Other)
  Sender: FDA-Public Use
  Company Number: JP-ASTRAZENECA-2011SE48278

PATIENT
  Age: 21533 Day
  Sex: Female
  Weight: 53 kg

DRUGS (7)
  1. FOSCAVIR [Suspect]
     Indication: CYTOMEGALOVIRUS INFECTION
     Dosage: STRENGTH: 24 MG/ML DAILY DOSE: 150 MILLIGRAMS TWO TIMES A DAY
     Route: 042
     Dates: start: 20110808, end: 20110814
  2. FLUCONAZOLE [Concomitant]
     Route: 042
     Dates: start: 20110801, end: 20110814
  3. REMINARON [Concomitant]
     Route: 042
     Dates: start: 20110802, end: 20110812
  4. PREDNISOLONE [Concomitant]
     Route: 042
     Dates: start: 20110802, end: 20110811
  5. OMEPRAZOLE [Concomitant]
     Route: 042
     Dates: start: 20110801, end: 20110814
  6. DORIPENEM MONOHYDRATE [Concomitant]
     Route: 042
     Dates: start: 20110802, end: 20110814
  7. PENTAMIDINE ISETHIONATE [Concomitant]
     Route: 042
     Dates: start: 20110810, end: 20110814

REACTIONS (3)
  - PULMONARY OEDEMA [None]
  - HYPOCALCAEMIA [None]
  - RENAL IMPAIRMENT [None]
